FAERS Safety Report 15496584 (Version 1)
Quarter: 2018Q4

REPORT INFORMATION
  Report Type: Spontaneous
  Country: US (occurrence: US)
  Receive Date: 20181013
  Receipt Date: 20181013
  Transmission Date: 20190205
  Serious: No
  Sender: FDA-Public Use
  Company Number: US-JNJFOC-20180921201

PATIENT
  Age: 90 Year
  Sex: Female

DRUGS (1)
  1. TYLENOL EXTRA STRENGTH [Suspect]
     Active Substance: ACETAMINOPHEN
     Indication: PRURITUS
     Route: 048

REACTIONS (3)
  - Pain in extremity [Unknown]
  - Product use in unapproved indication [Unknown]
  - Product packaging issue [Unknown]
